FAERS Safety Report 15585616 (Version 1)
Quarter: 2018Q4

REPORT INFORMATION
  Report Type: Report from Study
  Country: None (occurrence: US)
  Receive Date: 20181104
  Receipt Date: 20181104
  Transmission Date: 20190205
  Serious: Yes (Other)
  Sender: FDA-Public Use
  Company Number: US-ABBVIE-18K-163-2455550-00

PATIENT
  Age: 51 Year
  Sex: Male

DRUGS (2)
  1. HUMIRA [Suspect]
     Active Substance: ADALIMUMAB
     Indication: CROHN^S DISEASE
     Route: 058
  2. HUMIRA [Suspect]
     Active Substance: ADALIMUMAB
     Indication: COLITIS ULCERATIVE

REACTIONS (27)
  - Spinal deformity [Unknown]
  - Gastrooesophageal reflux disease [Unknown]
  - Constipation [Unknown]
  - Circumcision [Unknown]
  - Faeces discoloured [Unknown]
  - Acne [Unknown]
  - Peripheral swelling [Unknown]
  - Onycholysis [Unknown]
  - Musculoskeletal disorder [Unknown]
  - Hypoaesthesia [Unknown]
  - Peripheral vascular disorder [Unknown]
  - Nerve injury [Unknown]
  - Skin discolouration [Unknown]
  - Blister [Unknown]
  - Muscle spasms [Unknown]
  - Skin ulcer [Unknown]
  - Weight increased [Unknown]
  - Onychomadesis [Unknown]
  - Tinea cruris [Unknown]
  - Skin papilloma [Unknown]
  - Fall [Unknown]
  - Limb discomfort [Unknown]
  - Flatulence [Unknown]
  - Vision blurred [Unknown]
  - Eczema [Unknown]
  - Herpes virus infection [Unknown]
  - Haemorrhage [Unknown]

NARRATIVE: CASE EVENT DATE: 2011
